FAERS Safety Report 25016864 (Version 1)
Quarter: 2025Q1

REPORT INFORMATION
  Report Type: Spontaneous
  Country: NO (occurrence: NO)
  Receive Date: 20250227
  Receipt Date: 20250227
  Transmission Date: 20250408
  Serious: Yes (Life-Threatening, Other)
  Sender: TEVA
  Company Number: None

PATIENT
  Age: 32 Year
  Sex: Female
  Weight: 60 kg

DRUGS (1)
  1. ESCITALOPRAM [Suspect]
     Active Substance: ESCITALOPRAM OXALATE
     Indication: Anxiety
     Route: 048
     Dates: start: 201101, end: 202307

REACTIONS (6)
  - Suicidal ideation [Recovering/Resolving]
  - Insomnia [Recovering/Resolving]
  - Panic attack [Recovering/Resolving]
  - Derealisation [Recovering/Resolving]
  - Fatigue [Recovering/Resolving]
  - Depression [Recovering/Resolving]

NARRATIVE: CASE EVENT DATE: 20230101
